FAERS Safety Report 7118859-6 (Version None)
Quarter: 2010Q4

REPORT INFORMATION
  Report Type: 
  Country: None (occurrence: None)
  Receive Date: 20101123
  Receipt Date: 20101029
  Transmission Date: 20110411
  Serious: No
  Sender: FDA-Public Use
  Company Number: US-KINGPHARMUSA00001-K201001334

PATIENT
  Age: 92 Year
  Sex: Female
  Weight: 40.816 kg

DRUGS (3)
  1. FLECTOR [Suspect]
     Indication: MUSCULOSKELETAL PAIN
     Dosage: 1 PATCH, Q 12 HOURS
     Route: 061
     Dates: start: 20101028
  2. ASPIRIN [Concomitant]
  3. ANTIHYPERTENSIVES [Concomitant]
     Indication: HYPERTENSION

REACTIONS (1)
  - APPLICATION SITE ERYTHEMA [None]
